FAERS Safety Report 16120950 (Version 1)
Quarter: 2019Q1

REPORT INFORMATION
  Report Type: Spontaneous
  Country: US (occurrence: US)
  Receive Date: 20190327
  Receipt Date: 20190327
  Transmission Date: 20190418
  Serious: Yes (Other)
  Sender: FDA-Public Use
  Company Number: US-009507513-1903USA008976

PATIENT
  Age: 42 Year
  Sex: Male

DRUGS (7)
  1. PRIMAXIN IV [Concomitant]
     Active Substance: CILASTATIN SODIUM\IMIPENEM
     Dosage: UNKNOWN
  2. INVESTIGATIONAL DRUG (UNSPECIFIED) [Concomitant]
     Active Substance: INVESTIGATIONAL PRODUCT
     Dosage: UNKNOWN
  3. ATIVAN [Suspect]
     Active Substance: LORAZEPAM
     Dosage: 24-36 MG DAILY VIA CONTINUOUS INFUSION
     Route: 042
     Dates: start: 19971227, end: 19980103
  4. ZOSYN [Suspect]
     Active Substance: PIPERACILLIN SODIUM\TAZOBACTAM SODIUM
     Dosage: UNKNOWN
  5. INVESTIGATIONAL DRUG (UNSPECIFIED) [Suspect]
     Active Substance: INVESTIGATIONAL PRODUCT
     Dosage: UNKNOWN
  6. ZOSYN [Concomitant]
     Active Substance: PIPERACILLIN SODIUM\TAZOBACTAM SODIUM
     Dosage: UNKNOWN
  7. PRIMAXIN IV [Suspect]
     Active Substance: CILASTATIN SODIUM\IMIPENEM
     Dosage: UNKNOWN

REACTIONS (1)
  - Dermatitis exfoliative [Unknown]

NARRATIVE: CASE EVENT DATE: 19971229
